FAERS Safety Report 7875851-1 (Version None)
Quarter: 2011Q4

REPORT INFORMATION
  Report Type: 
  Country: None (occurrence: None)
  Receive Date: 20111031
  Receipt Date: 20111022
  Transmission Date: 20120403
  Serious: Yes (Hospitalization, Other)
  Sender: FDA-Public Use
  Company Number: PHHY2011CO94030

PATIENT
  Sex: Female

DRUGS (3)
  1. AFINITOR [Suspect]
     Indication: CERVIX NEOPLASM
     Dosage: 10 MG
     Route: 048
     Dates: start: 20110905, end: 20111014
  2. SANDOSTATIN LAR [Suspect]
     Indication: CERVIX NEOPLASM
     Dosage: 20 MG
     Dates: start: 20110816
  3. WARFARIN SODIUM [Concomitant]

REACTIONS (8)
  - HEPATIC NEOPLASM [None]
  - LIVER INJURY [None]
  - ASTHENIA [None]
  - MUSCULOSKELETAL PAIN [None]
  - LIVER CARCINOMA RUPTURED [None]
  - DYSSTASIA [None]
  - BRADYCARDIA [None]
  - DRUG INTOLERANCE [None]
